FAERS Safety Report 20106912 (Version 1)
Quarter: 2021Q4

REPORT INFORMATION
  Report Type: Spontaneous
  Country: AU (occurrence: AU)
  Receive Date: 20211124
  Receipt Date: 20211124
  Transmission Date: 20220303
  Serious: Yes (Hospitalization, Other)
  Sender: FDA-Public Use
  Company Number: AU-ABBVIE-21K-008-4172151-00

PATIENT
  Age: 64 Year
  Sex: Female

DRUGS (26)
  1. VALPROATE SODIUM [Suspect]
     Active Substance: VALPROATE SODIUM
     Indication: Affective disorder
     Dosage: AT BED TIME
     Route: 065
  2. VALPROATE SODIUM [Suspect]
     Active Substance: VALPROATE SODIUM
     Dosage: AT BED TIME
     Route: 065
  3. VALPROATE SODIUM [Suspect]
     Active Substance: VALPROATE SODIUM
     Route: 065
  4. VALPROATE SODIUM [Suspect]
     Active Substance: VALPROATE SODIUM
     Route: 065
  5. VALPROATE SODIUM [Suspect]
     Active Substance: VALPROATE SODIUM
     Route: 065
  6. CLOZAPINE [Suspect]
     Active Substance: CLOZAPINE
     Indication: Schizoaffective disorder
     Route: 048
     Dates: start: 20190104
  7. CLOZAPINE [Suspect]
     Active Substance: CLOZAPINE
     Indication: Schizoaffective disorder
     Dosage: AT BED TIME
     Route: 065
  8. CLOZAPINE [Suspect]
     Active Substance: CLOZAPINE
     Dosage: MORNING
     Route: 065
  9. CLOZAPINE [Suspect]
     Active Substance: CLOZAPINE
     Dosage: AT BED TIME
     Route: 065
  10. CLOZAPINE [Suspect]
     Active Substance: CLOZAPINE
     Route: 065
     Dates: end: 20200221
  11. RISPERIDONE [Suspect]
     Active Substance: RISPERIDONE
     Indication: Schizophrenia
     Dosage: MORNING
     Route: 065
  12. RISPERIDONE [Suspect]
     Active Substance: RISPERIDONE
     Dosage: AT BED TIME
     Route: 065
  13. RISPERIDONE [Suspect]
     Active Substance: RISPERIDONE
     Dosage: 1 TAB IN MORNING AND 1 TAB NIGHT
     Route: 065
  14. CHLORPROMAZINE [Suspect]
     Active Substance: CHLORPROMAZINE
     Indication: Behaviour disorder
     Dosage: 1 - 2 TABLET 4 TIMES A DAY
     Route: 065
  15. CHLORPROMAZINE [Suspect]
     Active Substance: CHLORPROMAZINE
     Indication: Agitation
     Route: 065
  16. PANTOPRAZOLE [Suspect]
     Active Substance: PANTOPRAZOLE
     Indication: Gastrooesophageal reflux disease
     Dosage: IN MORNING
     Route: 065
  17. FENOFIBRATE [Suspect]
     Active Substance: FENOFIBRATE
     Indication: Blood cholesterol increased
     Dosage: MORNING
     Route: 065
  18. ACETAMINOPHEN [Suspect]
     Active Substance: ACETAMINOPHEN
     Indication: Pain
     Route: 065
  19. LITHIUM [Suspect]
     Active Substance: LITHIUM
     Indication: Product used for unknown indication
     Dosage: AT BED TIME
     Route: 065
  20. LITHIUM [Suspect]
     Active Substance: LITHIUM
     Dosage: MORNING
     Route: 065
     Dates: start: 201908
  21. LITHIUM [Suspect]
     Active Substance: LITHIUM
     Dosage: AT BED TIME
     Route: 065
     Dates: start: 201908
  22. LITHIUM [Suspect]
     Active Substance: LITHIUM
     Route: 065
  23. DONEPEZIL [Concomitant]
     Active Substance: DONEPEZIL
     Indication: Product used for unknown indication
  24. METFORMIN [Concomitant]
     Active Substance: METFORMIN HYDROCHLORIDE
     Indication: Product used for unknown indication
  25. ZUCLOPENTHIXOL [Concomitant]
     Active Substance: ZUCLOPENTHIXOL
     Indication: Product used for unknown indication
     Dates: start: 20181012
  26. AMISULPRIDE [Concomitant]
     Active Substance: AMISULPRIDE
     Indication: Product used for unknown indication

REACTIONS (17)
  - Urinary tract infection [Unknown]
  - Grandiosity [Not Recovered/Not Resolved]
  - Delusion [Not Recovered/Not Resolved]
  - Mental impairment [Not Recovered/Not Resolved]
  - Hallucination [Unknown]
  - Neutropenia [Unknown]
  - Leukopenia [Unknown]
  - Aggression [Recovered/Resolved]
  - Ataxia [Unknown]
  - Toxicity to various agents [Unknown]
  - Tremor [Unknown]
  - Diarrhoea [Unknown]
  - Confusional state [Unknown]
  - Hypotension [Unknown]
  - Mania [Unknown]
  - Malaise [Unknown]
  - Headache [Unknown]

NARRATIVE: CASE EVENT DATE: 20120101
